FAERS Safety Report 4469710-4 (Version None)
Quarter: 2004Q4

REPORT INFORMATION
  Report Type: 
  Country: None (occurrence: None)
  Receive Date: 20041008
  Receipt Date: 20040930
  Transmission Date: 20050328
  Serious: Yes (Other)
  Sender: FDA-Public Use
  Company Number: DE-JNJFOC-20041000166

PATIENT
  Age: 8 Year
  Sex: Male
  Weight: 30 kg

DRUGS (1)
  1. CONCERTA [Suspect]
     Indication: DRUG USE FOR UNKNOWN INDICATION
     Route: 049

REACTIONS (2)
  - HYPOGLYCAEMIA [None]
  - UNEXPECTED THERAPEUTIC DRUG EFFECT [None]
